FAERS Safety Report 4558061-5 (Version None)
Quarter: 2005Q1

REPORT INFORMATION
  Report Type: 
  Country: None (occurrence: None)
  Receive Date: 20050121
  Receipt Date: 20040728
  Transmission Date: 20050727
  Serious: No
  Sender: FDA-Public Use
  Company Number: US-BRISTOL-MYERS SQUIBB COMPANY-12654984

PATIENT
  Age: 48 Year
  Sex: Female
  Weight: 54 kg

DRUGS (10)
  1. SERZONE [Suspect]
     Indication: DEPRESSION
     Route: 048
  2. SERZONE [Suspect]
     Indication: ANXIETY
     Route: 048
  3. LEXAPRO [Concomitant]
  4. SOMA [Concomitant]
  5. RISPERDAL [Concomitant]
  6. KLONOPIN [Concomitant]
  7. MAXALT [Concomitant]
  8. DARVOCET [Concomitant]
  9. PERCOCET [Concomitant]
  10. ACYCLOVIR [Concomitant]

REACTIONS (3)
  - DRUG WITHDRAWAL SYNDROME [None]
  - PLATELET COUNT DECREASED [None]
  - WHITE BLOOD CELL COUNT DECREASED [None]
